FAERS Safety Report 9239628 (Version 1)
Quarter: 2013Q2

REPORT INFORMATION
  Report Type: Spontaneous
  Country: US (occurrence: US)
  Receive Date: 20130418
  Receipt Date: 20130418
  Transmission Date: 20140414
  Serious: Yes (Other)
  Sender: FDA-Public Use
  Company Number: CHPA2013US006444

PATIENT
  Age: 87 Year
  Sex: Female

DRUGS (2)
  1. EXCEDRIN UNKNOWN [Suspect]
     Dosage: UNK, UNK
  2. ANTICOAGULANTS [Concomitant]

REACTIONS (3)
  - Myocardial infarction [Recovered/Resolved]
  - Therapeutic response unexpected [Unknown]
  - Incorrect dose administered [Unknown]
